FAERS Safety Report 23830006 (Version 2)
Quarter: 2024Q2

REPORT INFORMATION
  Report Type: Report from Study
  Country: IQ (occurrence: IQ)
  Receive Date: 20240508
  Receipt Date: 20240524
  Transmission Date: 20240716
  Serious: Yes (Other)
  Sender: FDA-Public Use
  Company Number: IQ-BAYER-2024A066675

PATIENT
  Age: 62 Year
  Sex: Male

DRUGS (2)
  1. EYLEA [Suspect]
     Active Substance: AFLIBERCEPT
     Indication: Diabetic retinal oedema
     Dosage: UNK, SOLUTION FOR INJECTION, 40 MG/ML
     Dates: start: 2021, end: 2021
  2. EYLEA [Suspect]
     Active Substance: AFLIBERCEPT
     Dosage: 12 DOSE,INJUCT,MONTHLY, SOLUTION FOR INJECTION, 40 MG/ML
     Dates: start: 202204

REACTIONS (3)
  - Therapeutic response unexpected [Unknown]
  - Retinal detachment [Unknown]
  - Visual impairment [Unknown]
